FAERS Safety Report 9250704 (Version 1)
Quarter: 2013Q1

REPORT INFORMATION
  Report Type: Spontaneous
  Country: US (occurrence: None)
  Receive Date: 20130305
  Receipt Date: 20130305
  Transmission Date: 20140127
  Serious: Yes (Hospitalization, Other)
  Sender: FDA-Public Use
  Company Number: 163-21880-12063062

PATIENT
  Age: 65 Year
  Sex: Male

DRUGS (4)
  1. REVLIMID [Suspect]
     Indication: PLASMA CELL MYELOMA
     Dosage: 25 MG, 21 IN 28 D, PO
     Route: 048
     Dates: start: 20120415
  2. ASA (ACETYLSALICYLIC ACID) [Suspect]
  3. GABAPENTIN (GABAPENTIN) [Suspect]
  4. OMEPRAZOLE (OMEPRAZOLE) [Suspect]

REACTIONS (2)
  - Pulmonary embolism [None]
  - Hip fracture [None]
